FAERS Safety Report 21976843 (Version 1)
Quarter: 2023Q1

REPORT INFORMATION
  Report Type: Report from Study
  Country: US (occurrence: US)
  Receive Date: 20230210
  Receipt Date: 20230210
  Transmission Date: 20230418
  Serious: Yes (Other)
  Sender: FDA-Public Use
  Company Number: US-SERVIER-S23000894

PATIENT

DRUGS (8)
  1. PEGASPARGASE [Suspect]
     Active Substance: PEGASPARGASE
     Indication: B precursor type acute leukaemia
     Dosage: 2000 IU/M2 ON DAYS 4, 43
     Route: 042
     Dates: start: 20221019, end: 20221130
  2. DEXAMETHASONE [Suspect]
     Active Substance: DEXAMETHASONE
     Indication: B precursor type acute leukaemia
     Dosage: 5 MG/M2, BID, D1-7, D15-21
     Route: 048
     Dates: start: 20221019, end: 20221108
  3. DOXORUBICIN HYDROCHLORIDE [Suspect]
     Active Substance: DOXORUBICIN HYDROCHLORIDE
     Indication: B precursor type acute leukaemia
     Dosage: 25 MG/M2 ON DAYS 1, 8, AND 15
     Route: 042
     Dates: start: 20221019, end: 20221102
  4. METHOTREXATE [Suspect]
     Active Substance: METHOTREXATE
     Indication: B precursor type acute leukaemia
     Dosage: 15 MG ON DAYS 1,29,36;
     Route: 037
     Dates: start: 20221019, end: 20221123
  5. VINCRISTINE [Suspect]
     Active Substance: VINCRISTINE
     Indication: B precursor type acute leukaemia
     Dosage: 1.5 MG/M2, MAXIMUM 2 MG, D1, 8, 15, 43, 50
     Route: 042
     Dates: start: 20221019, end: 20221102
  6. THIOGUANINE [Suspect]
     Active Substance: THIOGUANINE
     Indication: B precursor type acute leukaemia
     Dosage: 60 MG/M2, DAYS  29-42
     Route: 048
     Dates: start: 20221114, end: 20221128
  7. CYCLOPHOSPHAMIDE [Suspect]
     Active Substance: CYCLOPHOSPHAMIDE
     Indication: B precursor type acute leukaemia
     Dosage: 1000 MG/M2, DAY 29
     Route: 042
     Dates: start: 20221116, end: 20221116
  8. CYTARABINE [Suspect]
     Active Substance: CYTARABINE
     Indication: B precursor type acute leukaemia
     Dosage: 75 MG/M2 ON DAYS 29-32 AND 36-39
     Route: 065
     Dates: start: 20221116, end: 20221128

REACTIONS (1)
  - Hepatic fibrosis [Not Recovered/Not Resolved]

NARRATIVE: CASE EVENT DATE: 20221207
